FAERS Safety Report 5505164-4 (Version None)
Quarter: 2007Q4

REPORT INFORMATION
  Report Type: 
  Country: None (occurrence: None)
  Receive Date: 20071102
  Receipt Date: 20071023
  Transmission Date: 20080405
  Serious: Yes (Other)
  Sender: FDA-Public Use
  Company Number: JP-ASTRAZENECA-2007AP06743

PATIENT
  Sex: Female

DRUGS (2)
  1. ZOLADEX [Suspect]
     Indication: ENDOMETRIOSIS
     Route: 058
     Dates: start: 20060525, end: 20060525
  2. UNKNOWN DRUG [Concomitant]

REACTIONS (4)
  - EYELID OEDEMA [None]
  - OEDEMA [None]
  - PRURITUS [None]
  - RASH [None]
